FAERS Safety Report 10273598 (Version 1)
Quarter: 2014Q2

REPORT INFORMATION
  Report Type: Spontaneous
  Country: US (occurrence: None)
  Receive Date: 20140630
  Receipt Date: 20140630
  Transmission Date: 20141212
  Serious: Yes (Other)
  Sender: FDA-Public Use
  Company Number: 201406-US-000841

PATIENT
  Sex: Female

DRUGS (1)
  1. FLEET ENEMA (118 MILLILITRE(S), RECTAL SOLUTION) [Suspect]
     Indication: CONSTIPATION
     Route: 054

REACTIONS (3)
  - Glomerular filtration rate abnormal [None]
  - Incorrect drug administration duration [None]
  - Off label use [None]
